FAERS Safety Report 17812212 (Version 1)
Quarter: 2020Q2

REPORT INFORMATION
  Report Type: Spontaneous
  Country: US (occurrence: US)
  Receive Date: 20200519
  Receipt Date: 20200519
  Transmission Date: 20200714
  Serious: Yes (Life-Threatening)
  Sender: FDA-Public Use
  Company Number: None

PATIENT

DRUGS (1)
  1. METHYLPREDNISOLONE 4MG TABLET [Suspect]
     Active Substance: METHYLPREDNISOLONE

REACTIONS (7)
  - Atrial fibrillation [None]
  - Headache [None]
  - Frustration tolerance decreased [None]
  - Body temperature increased [None]
  - Blood glucose decreased [None]
  - Back pain [None]
  - Nausea [None]

NARRATIVE: CASE EVENT DATE: 20190219
